FAERS Safety Report 4316992-5 (Version None)
Quarter: 2004Q1

REPORT INFORMATION
  Report Type: 
  Country: None (occurrence: None)
  Receive Date: 20040312
  Receipt Date: 20040227
  Transmission Date: 20041129
  Serious: No
  Sender: FDA-Public Use
  Company Number: 2004-BP-01515BP(0)

PATIENT
  Age: 53 Year
  Sex: Male

DRUGS (3)
  1. MIRAPEX [Suspect]
     Indication: PARKINSON'S DISEASE
     Dosage: 3 MG (1 MG, 1 MG TID), PO
     Route: 048
     Dates: start: 20010101, end: 20040223
  2. SINEMET [Concomitant]
  3. COMTAN [Concomitant]

REACTIONS (1)
  - GAMBLING [None]
